FAERS Safety Report 12699807 (Version 1)
Quarter: 2016Q3

REPORT INFORMATION
  Report Type: Report from Study
  Country: BR (occurrence: BR)
  Receive Date: 20160830
  Receipt Date: 20160830
  Transmission Date: 20161109
  Serious: Yes (Death, Other)
  Sender: FDA-Public Use
  Company Number: BR-JNJFOC-20160822787

PATIENT
  Age: 76 Year
  Sex: Male

DRUGS (2)
  1. REMICADE [Suspect]
     Active Substance: INFLIXIMAB
     Indication: RHEUMATOID ARTHRITIS
     Route: 042
     Dates: start: 2015, end: 2015
  2. SIMVASTATIN. [Concomitant]
     Active Substance: SIMVASTATIN
     Route: 065

REACTIONS (7)
  - Blindness [Unknown]
  - Fall [Unknown]
  - Aphasia [Unknown]
  - Vascular operation [Unknown]
  - Spinal fracture [Unknown]
  - Metastases to lung [Unknown]
  - Renal neoplasm [Fatal]

NARRATIVE: CASE EVENT DATE: 201507
